FAERS Safety Report 4880757-6 (Version None)
Quarter: 2006Q1

REPORT INFORMATION
  Report Type: 
  Country: None (occurrence: None)
  Receive Date: 20060111
  Receipt Date: 20051114
  Transmission Date: 20060701
  Serious: No
  Sender: FDA-Public Use
  Company Number: 2005S1000248

PATIENT
  Age: 84 Year

DRUGS (3)
  1. CUBICIN [Suspect]
     Indication: MASTOIDITIS
     Dosage: 300 MG;Q24H;IV
     Route: 042
     Dates: start: 20051111
  2. CUBICIN [Suspect]
     Indication: STAPHYLOCOCCAL INFECTION
     Dosage: 300 MG;Q24H;IV
     Route: 042
     Dates: start: 20051111
  3. DIAZEPAM [Concomitant]

REACTIONS (1)
  - INFUSION SITE REACTION [None]
